FAERS Safety Report 15720165 (Version 1)
Quarter: 2018Q4

REPORT INFORMATION
  Report Type: Spontaneous
  Country: US (occurrence: US)
  Receive Date: 20181213
  Receipt Date: 20181213
  Transmission Date: 20190205
  Serious: No
  Sender: FDA-Public Use
  Company Number: US-PFIZER INC-2018508990

PATIENT
  Age: 55 Year
  Sex: Male

DRUGS (3)
  1. SOMAVERT [Suspect]
     Active Substance: PEGVISOMANT
     Dosage: 20 MG, DAILY
     Route: 058
     Dates: start: 20181201
  2. SOMAVERT [Suspect]
     Active Substance: PEGVISOMANT
     Indication: ACROMEGALY
     Dosage: 10 MG, DAILY
     Route: 058
     Dates: start: 2008
  3. SOMAVERT [Suspect]
     Active Substance: PEGVISOMANT
     Dosage: 15 MG, UNK
     Route: 058

REACTIONS (7)
  - Sinus congestion [Unknown]
  - Cough [Unknown]
  - Nasal disorder [Unknown]
  - Medial tibial stress syndrome [Unknown]
  - Injection site pain [Unknown]
  - Pain in jaw [Unknown]
  - Tooth infection [Unknown]
